FAERS Safety Report 15300297 (Version 1)
Quarter: 2018Q3

REPORT INFORMATION
  Report Type: Spontaneous
  Country: US (occurrence: US)
  Receive Date: 20180821
  Receipt Date: 20180821
  Transmission Date: 20181010
  Serious: No
  Sender: FDA-Public Use
  Company Number: US-GLAXOSMITHKLINE-US2018147309

PATIENT
  Age: 50 Year
  Sex: Female

DRUGS (1)
  1. FLONASE [Suspect]
     Active Substance: FLUTICASONE PROPIONATE
     Indication: HYPERSENSITIVITY
     Dosage: UNK
     Dates: start: 20180810, end: 20180812

REACTIONS (9)
  - Rhinorrhoea [Unknown]
  - Lacrimation increased [Unknown]
  - Lip swelling [Unknown]
  - Urticaria [Unknown]
  - Rash [Unknown]
  - Peripheral swelling [Unknown]
  - Swelling face [Unknown]
  - Hypersensitivity [Unknown]
  - Feeling hot [Unknown]

NARRATIVE: CASE EVENT DATE: 20180812
